FAERS Safety Report 8561460-8 (Version None)
Quarter: 2012Q3

REPORT INFORMATION
  Report Type: 
  Country: None (occurrence: None)
  Receive Date: 20120802
  Receipt Date: 20120716
  Transmission Date: 20120928
  Serious: No
  Sender: FDA-Public Use
  Company Number: US-ASTRAZENECA-2012SE49391

PATIENT
  Age: 55 Year
  Sex: Female
  Weight: 74.8 kg

DRUGS (3)
  1. OTHER MEDICATION [Concomitant]
  2. ZOMIG [Suspect]
     Indication: MIGRAINE
     Route: 048
     Dates: start: 20110101
  3. SUTERA [Concomitant]

REACTIONS (4)
  - FEELING ABNORMAL [None]
  - MIGRAINE [None]
  - HEADACHE [None]
  - STRESS [None]
